FAERS Safety Report 24914327 (Version 1)
Quarter: 2025Q1

REPORT INFORMATION
  Report Type: Spontaneous
  Country: FR (occurrence: FR)
  Receive Date: 20250203
  Receipt Date: 20250203
  Transmission Date: 20250409
  Serious: Yes (Life-Threatening, Other)
  Sender: Haleon PLC
  Company Number: None

PATIENT
  Age: 35 Year
  Sex: Male
  Weight: 112 kg

DRUGS (1)
  1. IBUPROFEN [Suspect]
     Active Substance: IBUPROFEN
     Indication: Odynophagia
     Route: 048

REACTIONS (3)
  - Cellulitis [Recovering/Resolving]
  - Septic shock [Recovering/Resolving]
  - Cellulitis pharyngeal [Recovering/Resolving]

NARRATIVE: CASE EVENT DATE: 20241225
